FAERS Safety Report 4466037-1 (Version None)
Quarter: 2004Q3

REPORT INFORMATION
  Report Type: 
  Country: None (occurrence: None)
  Receive Date: 20040930
  Receipt Date: 20040930
  Transmission Date: 20050211
  Serious: Yes (Other)
  Sender: FDA-Public Use
  Company Number: None

PATIENT
  Age: 81 Year
  Sex: Male
  Weight: 99.3 kg

DRUGS (24)
  1. SIMVASTATIN [Suspect]
     Indication: HYPERCHOLESTEROLAEMIA
     Dosage: 20MG  QHS  ORAL
     Route: 048
     Dates: start: 20031203, end: 20040719
  2. LISINOPRIL [Suspect]
     Indication: HYPERTENSION
     Dosage: 10MG  QHS  ORAL
     Route: 048
     Dates: start: 20040427, end: 20040719
  3. ACETAMINOPHEN [Concomitant]
  4. ACETAMINOPHEN W/ CODEINE [Concomitant]
  5. ALLOPURINOL [Concomitant]
  6. ASPIRIN [Concomitant]
  7. CAPSAICIN [Concomitant]
  8. CLOPIDOGREL BISULFATE [Concomitant]
  9. CYANOCOBALAMIN [Concomitant]
  10. EMULSION TOP CRM [Concomitant]
  11. FUROSEMIDE [Concomitant]
  12. GUAIFENESIN [Concomitant]
  13. INSULIN NOVOLIN [Concomitant]
  14. METOPROLOL SUCC [Concomitant]
  15. MULTIVITAMIN CAP [Concomitant]
  16. PENTOXIFYLLINE [Concomitant]
  17. POLYVINYL ALCOHOL [Concomitant]
  18. PSYLLIUM [Concomitant]
  19. RABEPRAZOLE TAB [Concomitant]
  20. RANITIDINE HCL [Concomitant]
  21. ROSIGLITAZONE [Concomitant]
  22. VITAMIN E [Concomitant]
  23. ZINC SULFATE [Concomitant]
  24. SODIUM CHLORIDE INJ [Concomitant]

REACTIONS (3)
  - ASTHENIA [None]
  - BLOOD POTASSIUM INCREASED [None]
  - MYALGIA [None]
